FAERS Safety Report 13581292 (Version 1)
Quarter: 2017Q2

REPORT INFORMATION
  Report Type: Spontaneous
  Country: US (occurrence: US)
  Receive Date: 20170525
  Receipt Date: 20170525
  Transmission Date: 20170830
  Serious: Yes (Other)
  Sender: FDA-Public Use
  Company Number: None

PATIENT
  Age: 71 Year
  Sex: Male
  Weight: 114.5 kg

DRUGS (19)
  1. ALPRAZOLAM. [Concomitant]
     Active Substance: ALPRAZOLAM
  2. DOCUSATE [Concomitant]
     Active Substance: DOCUSATE
  3. FUROSEMIDE. [Concomitant]
     Active Substance: FUROSEMIDE
  4. METHOTREXATE. [Concomitant]
     Active Substance: METHOTREXATE
  5. PREDNISONE. [Concomitant]
     Active Substance: PREDNISONE
  6. XARELTO [Concomitant]
     Active Substance: RIVAROXABAN
  7. GABAPENTIN. [Concomitant]
     Active Substance: GABAPENTIN
  8. MORPHINE ER [Concomitant]
     Active Substance: MORPHINE
  9. MULTIVITAMIN [Concomitant]
     Active Substance: VITAMINS
  10. CALCIUM WITH VITAMIN D [Concomitant]
     Active Substance: CALCIUM\VITAMIN D
  11. MORPHINE IR [Concomitant]
     Active Substance: MORPHINE
  12. FOLIC ACID. [Concomitant]
     Active Substance: FOLIC ACID
  13. ZOCOR [Concomitant]
     Active Substance: SIMVASTATIN
  14. ACTEMRA [Suspect]
     Active Substance: TOCILIZUMAB
     Indication: POLYMYALGIA RHEUMATICA
     Dosage: ?          OTHER FREQUENCY:MONTHLY;?
     Route: 041
     Dates: start: 20170214, end: 20170525
  15. ALLOPURINOL. [Concomitant]
     Active Substance: ALLOPURINOL
  16. METFORMIN [Concomitant]
     Active Substance: METFORMIN HYDROCHLORIDE
  17. GLIPIZIDE. [Concomitant]
     Active Substance: GLIPIZIDE
  18. OMEPRAZOLE. [Concomitant]
     Active Substance: OMEPRAZOLE
  19. EFFEXOR [Concomitant]
     Active Substance: VENLAFAXINE HYDROCHLORIDE

REACTIONS (1)
  - Cellulitis [None]

NARRATIVE: CASE EVENT DATE: 20170420
